FAERS Safety Report 10619136 (Version 2)
Quarter: 2014Q4

REPORT INFORMATION
  Report Type: Spontaneous
  Country: US (occurrence: US)
  Receive Date: 20141202
  Receipt Date: 20141202
  Transmission Date: 20150529
  Serious: Yes (Other)
  Sender: FDA-Public Use
  Company Number: US-PFIZER INC-2014320797

PATIENT
  Age: 64 Year
  Sex: Female

DRUGS (1)
  1. DEPO-MEDROL [Suspect]
     Active Substance: METHYLPREDNISOLONE ACETATE
     Dosage: UNK
     Route: 031

REACTIONS (4)
  - Accidental exposure to product [Unknown]
  - Optic atrophy [Not Recovered/Not Resolved]
  - Retinal injury [Unknown]
  - Necrotising retinitis [Unknown]
